FAERS Safety Report 13089424 (Version 1)
Quarter: 2017Q1

REPORT INFORMATION
  Report Type: Spontaneous
  Country: US (occurrence: US)
  Receive Date: 20170105
  Receipt Date: 20170105
  Transmission Date: 20170428
  Serious: No
  Sender: FDA-Public Use
  Company Number: US-PFIZER INC-2016598246

PATIENT
  Age: 63 Year
  Sex: Female

DRUGS (1)
  1. IBRANCE [Suspect]
     Active Substance: PALBOCICLIB
     Indication: NEOPLASM MALIGNANT
     Dosage: 125 MG, CYCLIC(TAKE 1 CAPSULE DAILY FOR 21 DAYS AND STOP 7 DAY)
     Route: 048
     Dates: start: 201610

REACTIONS (4)
  - Pruritus [Unknown]
  - Skin disorder [Unknown]
  - Product use issue [Unknown]
  - Rash [Unknown]
